FAERS Safety Report 6258009-1 (Version None)
Quarter: 2009Q3

REPORT INFORMATION
  Report Type: 
  Country: None (occurrence: None)
  Receive Date: 20090707
  Receipt Date: 20090630
  Transmission Date: 20100115
  Serious: Yes (Other)
  Sender: FDA-Public Use
  Company Number: US-JNJFOC-20090601568

PATIENT
  Sex: Female

DRUGS (1)
  1. TRINESSA [Suspect]
     Indication: CONTRACEPTION
     Route: 048

REACTIONS (13)
  - ABDOMINAL DISTENSION [None]
  - CONSTIPATION [None]
  - DEHYDRATION [None]
  - DIZZINESS [None]
  - HYPOMENORRHOEA [None]
  - MOOD SWINGS [None]
  - OEDEMA PERIPHERAL [None]
  - PRURITUS [None]
  - REACTION TO DRUG EXCIPIENTS [None]
  - SWELLING FACE [None]
  - SWOLLEN TONGUE [None]
  - VISION BLURRED [None]
  - WEIGHT INCREASED [None]
